FAERS Safety Report 8955050 (Version 1)
Quarter: 2012Q4

REPORT INFORMATION
  Report Type: 
  Country: US (occurrence: US)
  Receive Date: 20121207
  Receipt Date: 20121207
  Transmission Date: 20130627
  Serious: Yes (Death)
  Sender: FDA-Public Use
  Company Number: US-BRISTOL-MYERS SQUIBB COMPANY-17195520

PATIENT
  Age: 57 Year
  Sex: Female

DRUGS (9)
  1. TRAZODONE [Suspect]
  2. KEPPRA [Suspect]
  3. DIPHENHYDRAMINE [Suspect]
  4. ETHANOL [Suspect]
  5. CITALOPRAM [Suspect]
  6. LAMOTRIGINE [Suspect]
  7. MEMANTINE HCL [Suspect]
  8. QUETIAPINE [Suspect]
  9. VERAPAMIL [Suspect]

REACTIONS (4)
  - Toxicity to various agents [Fatal]
  - Completed suicide [Fatal]
  - Intentional overdose [Fatal]
  - Intentional overdose [None]
